FAERS Safety Report 4511749-4 (Version None)
Quarter: 2004Q4

REPORT INFORMATION
  Report Type: 
  Country: None (occurrence: None)
  Receive Date: 20041123
  Receipt Date: 20041123
  Transmission Date: 20050328
  Serious: Yes (Other)
  Sender: FDA-Public Use
  Company Number: None

PATIENT
  Age: 61 Year
  Sex: Male
  Weight: 78 kg

DRUGS (5)
  1. OXYBUTYNIN CHLORIDE [Suspect]
  2. FOSINOPRIL NA [Concomitant]
  3. THIAMINE HCL [Concomitant]
  4. TRAZODONE HCL [Concomitant]
  5. MULTI-VITAMIN [Concomitant]

REACTIONS (1)
  - CONSTIPATION [None]
